FAERS Safety Report 21507206 (Version 1)
Quarter: 2022Q4

REPORT INFORMATION
  Report Type: Report from Study
  Country: US (occurrence: US)
  Receive Date: 20221026
  Receipt Date: 20221026
  Transmission Date: 20230113
  Serious: No
  Sender: FDA-Public Use
  Company Number: US-ABBVIE-19P-163-2804355-00

PATIENT
  Age: 36 Year
  Sex: Female

DRUGS (20)
  1. HUMIRA [Suspect]
     Active Substance: ADALIMUMAB
     Indication: Colitis ulcerative
     Route: 058
     Dates: start: 201403, end: 20180222
  2. HUMIRA [Suspect]
     Active Substance: ADALIMUMAB
     Route: 058
     Dates: start: 20180301, end: 20180320
  3. HUMIRA [Suspect]
     Active Substance: ADALIMUMAB
     Route: 058
     Dates: start: 20180329, end: 20190412
  4. HUMIRA [Suspect]
     Active Substance: ADALIMUMAB
     Route: 058
     Dates: start: 20190413
  5. HUMIRA [Suspect]
     Active Substance: ADALIMUMAB
     Route: 058
     Dates: start: 20201007
  6. AZATHIOPRINE [Suspect]
     Active Substance: AZATHIOPRINE
     Indication: Colitis ulcerative
     Route: 048
     Dates: start: 2013, end: 20180117
  7. BUDESONIDE [Concomitant]
     Active Substance: BUDESONIDE
     Indication: Colitis ulcerative
     Dosage: TIME INTERVAL: AS NECESSARY
     Route: 048
     Dates: start: 2015, end: 2018
  8. LOESTRIN 1.5/30-21 [Concomitant]
     Indication: Contraception
     Route: 048
     Dates: start: 2009, end: 201812
  9. VITAMIN D3 [Concomitant]
     Active Substance: CHOLECALCIFEROL
     Indication: Vitamin D decreased
     Route: 048
     Dates: start: 20171116, end: 20171117
  10. VITAMIN D3 [Concomitant]
     Active Substance: CHOLECALCIFEROL
     Indication: Vitamin D decreased
     Route: 048
     Dates: start: 20171118, end: 20181003
  11. VITAMIN D3 [Concomitant]
     Active Substance: CHOLECALCIFEROL
     Indication: Vitamin D decreased
     Route: 048
     Dates: start: 20181124
  12. ACETAMINOPHEN [Concomitant]
     Active Substance: ACETAMINOPHEN
     Indication: Tonsillitis streptococcal
     Dosage: TIME INTERVAL: AS NECESSARY
     Route: 048
     Dates: start: 20180218, end: 20181027
  13. ACETAMINOPHEN [Concomitant]
     Active Substance: ACETAMINOPHEN
     Indication: Tonsillitis streptococcal
     Route: 048
     Dates: start: 20181028
  14. EPINEPHRINE [Concomitant]
     Active Substance: EPINEPHRINE
     Indication: Rubber sensitivity
     Dosage: TIME INTERVAL: AS NECESSARY
     Route: 030
     Dates: start: 20170327
  15. COMPAZINE [Concomitant]
     Active Substance: PROCHLORPERAZINE MALEATE
     Indication: Migraine
     Dosage: TIME INTERVAL: AS NECESSARY
     Route: 048
     Dates: start: 201809
  16. FLUOCINONIDE [Concomitant]
     Active Substance: FLUOCINONIDE
     Indication: Rash
     Route: 061
     Dates: start: 20200923
  17. LEVOTHYROXINE SODIUM [Concomitant]
     Active Substance: LEVOTHYROXINE SODIUM
     Indication: Thyroid disorder
     Route: 048
     Dates: start: 20201223
  18. COVID-19 VACCINE [Concomitant]
     Indication: COVID-19 immunisation
     Dosage: TIME INTERVAL: 1 TOTAL
     Route: 030
     Dates: start: 20210104, end: 20210104
  19. COVID-19 VACCINE [Concomitant]
     Indication: COVID-19 immunisation
     Dosage: TIME INTERVAL: 1 TOTAL
     Route: 030
     Dates: start: 20210126, end: 20210126
  20. DOXYCYCLINE [Concomitant]
     Active Substance: DOXYCYCLINE
     Indication: Staphylococcal infection
     Route: 048
     Dates: start: 20191119, end: 20191203

REACTIONS (2)
  - Upper respiratory tract infection [Recovered/Resolved]
  - Colitis ulcerative [Recovered/Resolved]

NARRATIVE: CASE EVENT DATE: 20181227
